FAERS Safety Report 10373687 (Version 1)
Quarter: 2014Q1

REPORT INFORMATION
  Report Type: Spontaneous
  Country: US (occurrence: None)
  Receive Date: 20140306
  Receipt Date: 20140306
  Transmission Date: 20141002
  Serious: Yes (Other)
  Sender: FDA-Public Use
  Company Number: 163-21880-13071798

PATIENT
  Age: 73 Year
  Sex: Female

DRUGS (7)
  1. REVLIMID (LENALIDOMIDE) (15 MILLIGRAM CAPSULES) [Suspect]
     Indication: PLASMA CELL MYELOMA
     Dosage: 21 IN 28 D
     Route: 048
     Dates: start: 20130103
  2. AMLODIPINE BESYLATE (AMLODIPINE BESYLATE) [Concomitant]
  3. PROMETHAZINE (PROMETHAZINE) [Concomitant]
  4. ASPIRIN (ACETYLSALICYLIC ACID) (ENTERIC-COATED TABLET) [Concomitant]
  5. WARFARIN (WARFARIN) [Concomitant]
  6. LUNESTA [Concomitant]
  7. COMPLETE MULTIVITAMINS (MULTIVITAMINS) (UNKNOWN) [Concomitant]

REACTIONS (5)
  - Head injury [None]
  - Memory impairment [None]
  - Drug dose omission [None]
  - Fall [None]
  - Dry eye [None]
